FAERS Safety Report 7462879-9 (Version None)
Quarter: 2011Q2

REPORT INFORMATION
  Report Type: 
  Country: None (occurrence: None)
  Receive Date: 20110506
  Receipt Date: 20100304
  Transmission Date: 20111010
  Serious: Yes (Death, Other)
  Sender: FDA-Public Use
  Company Number: US-BAYER-201015437NA

PATIENT
  Age: 82 Year
  Sex: Male
  Weight: 95.238 kg

DRUGS (20)
  1. LISINOPRIL [Concomitant]
     Indication: HYPERTENSION
     Dosage: UNK
     Dates: start: 19900101, end: 20060101
  2. ACIPHEX [Concomitant]
     Dosage: UNK UNK, QD
  3. PRIMATENE MIST [Concomitant]
  4. COD LIVER OIL [Concomitant]
     Dosage: 30/MI DAILY
  5. SAM-E [Concomitant]
     Dosage: UNK UNK, QD
  6. VITAMIN A [Concomitant]
     Dosage: UNK UNK, QD
  7. MAXZIDE [Concomitant]
     Dosage: 75/50 MG DAILY
  8. MULTI-VITAMINS [Concomitant]
     Dosage: UNK UNK, QD
  9. MAGNESIUM [Concomitant]
     Dosage: UNK UNK, QD
  10. VITAMIN E [Concomitant]
     Dosage: UNK UNK, QD
  11. NITROGLYCERIN [Concomitant]
     Indication: CHEST PAIN
     Dosage: UNK, PRN
     Dates: start: 20050818
  12. VITAMIN C [Concomitant]
     Dosage: UNK UNK, QD
  13. L-CARNITINE [Concomitant]
     Dosage: UNK UNK, QD
  14. HAWTHORN [Concomitant]
     Dosage: UNK UNK, QD
  15. CARBIDOPA [Concomitant]
     Dosage: 10 MG, QD
  16. TRASYLOL [Suspect]
     Indication: CORONARY ARTERY BYPASS
     Dosage: 200 ML (PER BILLING RECORD)
     Route: 042
     Dates: start: 20060319
  17. ACETYLSALICYLIC ACID SRT [Concomitant]
     Dosage: UNK
     Dates: start: 19860101, end: 20060101
  18. GLUCOPHAGE [Concomitant]
     Dosage: 500 MG, QD
  19. COENZYME Q10 [Concomitant]
     Dosage: UNK, BID
  20. INTEGRILIN [Concomitant]
     Indication: ACUTE CORONARY SYNDROME
     Route: 042

REACTIONS (5)
  - RENAL FAILURE ACUTE [None]
  - DEATH [None]
  - RENAL FAILURE [None]
  - INJURY [None]
  - PAIN [None]
